FAERS Safety Report 8862895 (Version 3)
Quarter: 2013Q1

REPORT INFORMATION
  Report Type: Report from Study
  Country: GB (occurrence: GB)
  Receive Date: 20121026
  Receipt Date: 20130214
  Transmission Date: 20140127
  Serious: Yes (Hospitalization)
  Sender: FDA-Public Use
  Company Number: GB-EISAI INC-E7389-03180-SOL-GB

PATIENT
  Age: 45 Year
  Sex: Female
  Weight: 56 kg

DRUGS (18)
  1. HALAVEN [Suspect]
     Indication: BREAST CANCER
     Route: 041
     Dates: start: 20120627, end: 2012
  2. HALAVEN [Suspect]
     Route: 041
     Dates: start: 20120913
  3. TRASTUZUMAB [Suspect]
     Indication: BREAST CANCER
     Route: 041
     Dates: start: 20120627
  4. OXYCODONE [Concomitant]
     Indication: BACK PAIN
  5. NAPROXEN [Concomitant]
     Indication: BACK PAIN
  6. DEXAMETHASONE [Concomitant]
     Indication: LETHARGY
  7. OMEPRAZOLE [Concomitant]
     Indication: DYSPEPSIA
  8. ZOPICLONE [Concomitant]
     Indication: INSOMNIA
  9. DOCUSATE [Concomitant]
     Indication: CONSTIPATION
  10. PARACETAMOL [Concomitant]
     Indication: BACK PAIN
  11. CHLORPHENAMINE [Concomitant]
     Indication: PROPHYLAXIS
  12. IBANDRONATE [Concomitant]
     Indication: BONE PAIN
  13. ZOMETA [Concomitant]
  14. FILGRASTIM [Concomitant]
     Indication: COLONY STIMULATING FACTOR PROPHYLAXIS
  15. FLUCONAZOLE [Concomitant]
     Indication: VULVOVAGINAL CANDIDIASIS
     Dates: start: 20120904, end: 20120904
  16. CIPRO [Concomitant]
     Indication: PROPHYLAXIS
     Dates: start: 201209
  17. CALCICHEW [Concomitant]
  18. OXYCONTIN [Concomitant]
     Dates: start: 20120821

REACTIONS (2)
  - Device related infection [Recovered/Resolved]
  - Mastitis [Recovered/Resolved]
